FAERS Safety Report 22106317 (Version 4)
Quarter: 2023Q4

REPORT INFORMATION
  Report Type: Spontaneous
  Country: US (occurrence: US)
  Receive Date: 20230317
  Receipt Date: 20231120
  Transmission Date: 20240110
  Serious: No
  Sender: FDA-Public Use
  Company Number: US-SA-SAC20230310000238

PATIENT
  Age: 45 Year
  Sex: Male

DRUGS (27)
  1. DUPIXENT [Suspect]
     Active Substance: DUPILUMAB
     Indication: Neurodermatitis
     Dosage: 300 MG, QOW
     Route: 058
     Dates: start: 20230121
  2. DUPIXENT [Suspect]
     Active Substance: DUPILUMAB
     Indication: Dermatitis atopic
  3. DUPIXENT [Suspect]
     Active Substance: DUPILUMAB
     Indication: Dermatitis atopic
     Dosage: 300 MG, QOW
     Route: 058
     Dates: start: 20231018
  4. ACTOS [Concomitant]
     Active Substance: PIOGLITAZONE HYDROCHLORIDE
     Dosage: UNK
  5. CYCLOBENZAPRINE [Concomitant]
     Active Substance: CYCLOBENZAPRINE
     Dosage: UNK
  6. ALBUTEROL SULFATE [Concomitant]
     Active Substance: ALBUTEROL SULFATE
     Dosage: UNK
  7. AMLODIPINE [Concomitant]
     Active Substance: AMLODIPINE BESYLATE
     Dosage: UNK
  8. AMLODIPINE [Concomitant]
     Active Substance: AMLODIPINE BESYLATE
  9. ASPIRIN [Concomitant]
     Active Substance: ASPIRIN
  10. ATORVASTATIN [Concomitant]
     Active Substance: ATORVASTATIN
  11. ATORVASTATIN [Concomitant]
     Active Substance: ATORVASTATIN
  12. ELETRIPTAN [Concomitant]
     Active Substance: ELETRIPTAN
     Dosage: UNK
  13. GLIMEPIRIDE [Concomitant]
     Active Substance: GLIMEPIRIDE
  14. JANUVIA [Concomitant]
     Active Substance: SITAGLIPTIN PHOSPHATE
  15. JARDIANCE [Concomitant]
     Active Substance: EMPAGLIFLOZIN
  16. LISINOPRIL [Concomitant]
     Active Substance: LISINOPRIL
  17. MAXALT [Concomitant]
     Active Substance: RIZATRIPTAN BENZOATE
  18. METFORMIN [Concomitant]
     Active Substance: METFORMIN HYDROCHLORIDE
  19. METOPROLOL TARTRATE [Concomitant]
     Active Substance: METOPROLOL TARTRATE
  20. NURTEC ODT [Concomitant]
     Active Substance: RIMEGEPANT SULFATE
  21. OXYCODONE [Concomitant]
     Active Substance: OXYCODONE
  22. PANTOPRAZOLE [Concomitant]
     Active Substance: PANTOPRAZOLE
  23. ZOLOFT [Concomitant]
     Active Substance: SERTRALINE HYDROCHLORIDE
  24. AIMOVIG [Concomitant]
     Active Substance: ERENUMAB-AOOE
  25. ATORVASTATIN [Concomitant]
     Active Substance: ATORVASTATIN
  26. ASPIRIN [Concomitant]
     Active Substance: ASPIRIN
  27. JANUVIA [Concomitant]
     Active Substance: SITAGLIPTIN PHOSPHATE

REACTIONS (7)
  - Carpal tunnel syndrome [Unknown]
  - Sleep disorder [Unknown]
  - Pruritus [Unknown]
  - Neurodermatitis [Unknown]
  - Dermatitis atopic [Unknown]
  - Therapeutic response shortened [Unknown]
  - Therapeutic product effect incomplete [Unknown]

NARRATIVE: CASE EVENT DATE: 20230101
